FAERS Safety Report 17229987 (Version 2)
Quarter: 2020Q1

REPORT INFORMATION
  Report Type: Report from Study
  Country: None (occurrence: US)
  Receive Date: 20200103
  Receipt Date: 20200109
  Transmission Date: 20200409
  Serious: Yes (Hospitalization)
  Sender: FDA-Public Use
  Company Number: US-ABBVIE-20P-163-3217747-00

PATIENT
  Sex: Female

DRUGS (1)
  1. RINVOQ [Suspect]
     Active Substance: UPADACITINIB
     Indication: RHEUMATOID ARTHRITIS
     Route: 048
     Dates: start: 20191029, end: 20191220

REACTIONS (3)
  - Hepatic cancer [Not Recovered/Not Resolved]
  - Kidney infection [Not Recovered/Not Resolved]
  - Liver disorder [Not Recovered/Not Resolved]
